FAERS Safety Report 6848666-0 (Version None)
Quarter: 2010Q3

REPORT INFORMATION
  Report Type: 
  Country: None (occurrence: None)
  Receive Date: 20100716
  Receipt Date: 20070907
  Transmission Date: 20110219
  Serious: No
  Sender: FDA-Public Use
  Company Number: US-PFIZER INC-2007075049

PATIENT
  Sex: Male
  Weight: 81.8 kg

DRUGS (5)
  1. CHANTIX [Suspect]
     Indication: SMOKING CESSATION THERAPY
     Dates: start: 20070831
  2. COSOPT [Concomitant]
  3. TRAVATAN [Concomitant]
  4. ALPHAGAN [Concomitant]
  5. NIFEDIPINE [Concomitant]

REACTIONS (4)
  - DYSPEPSIA [None]
  - FATIGUE [None]
  - INSOMNIA [None]
  - PAIN IN EXTREMITY [None]
